FAERS Safety Report 8569631 (Version 2)
Quarter: 2019Q2

REPORT INFORMATION
  Report Type: Spontaneous
  Country: DE (occurrence: DE)
  Receive Date: 20120518
  Receipt Date: 20190625
  Transmission Date: 20190711
  Serious: Yes (Hospitalization, Other)
  Sender: FDA-Public Use
  Company Number: DE-JNJFOC-20120513687

PATIENT
  Age: 24 Year
  Sex: Female
  Weight: 80 kg

DRUGS (10)
  1. CETIRIZINE HYDROCHLORIDE. [Suspect]
     Active Substance: CETIRIZINE HYDROCHLORIDE
     Indication: DERMATITIS ALLERGIC
     Dosage: 8-9 GESTATIONAL WEEK
     Route: 048
     Dates: start: 2010, end: 2010
  2. UTROGEST [Concomitant]
     Active Substance: PROGESTERONE
     Indication: POLYCYSTIC OVARIES
     Dosage: 0-8 GESTATIONAL WEEK
     Route: 048
     Dates: start: 20100912, end: 20101114
  3. METFORMIN [Concomitant]
     Active Substance: METFORMIN HYDROCHLORIDE
     Indication: POLYCYSTIC OVARIES
     Route: 048
     Dates: start: 201009, end: 201011
  4. FOLIC ACID. [Concomitant]
     Active Substance: FOLIC ACID
     Indication: PROPHYLAXIS OF NEURAL TUBE DEFECT
     Dosage: 0-28.1 GESTATIONAL WEEK
     Route: 048
     Dates: start: 20100919, end: 20110404
  5. EBENOL [Concomitant]
     Indication: HYPERSENSITIVITY
     Dosage: 0-8.3 GESTATIONAL WEEK
     Route: 003
     Dates: start: 20101114, end: 20101117
  6. METFORMIN [Concomitant]
     Active Substance: METFORMIN HYDROCHLORIDE
     Indication: GLUCOSE TOLERANCE IMPAIRED
     Dosage: 1000, 0-7 GESTATIONAL WEEK
     Route: 048
     Dates: start: 201009, end: 201011
  7. APSOMOL [Concomitant]
     Active Substance: ALBUTEROL
     Indication: BRONCHITIS
     Dosage: 13.1-13.6 GESTATIONAL WEEK
     Route: 055
     Dates: start: 20101220, end: 20101225
  8. CLOTRIMAZOLE. [Concomitant]
     Active Substance: CLOTRIMAZOLE
     Indication: FUNGAL INFECTION
     Dosage: 2ND TRIMESTER
     Route: 067
  9. L-THYROXIN [Concomitant]
     Active Substance: LEVOTHYROXINE SODIUM
     Indication: HYPOTHYROIDISM
     Dosage: 0-40 GESTATIONAL WEEK
     Route: 048
     Dates: start: 20100913, end: 20110626
  10. EMSER SALT [Concomitant]
     Indication: SELF-MEDICATION
     Dosage: 13.1-14 GESTATIONAL WEEK
     Route: 045
     Dates: start: 20101220, end: 20101226

REACTIONS (3)
  - Premature rupture of membranes [Unknown]
  - Maternal exposure during pregnancy [Unknown]
  - Gestational diabetes [Unknown]

NARRATIVE: CASE EVENT DATE: 2010
